FAERS Safety Report 24391799 (Version 1)
Quarter: 2024Q4

REPORT INFORMATION
  Report Type: Spontaneous
  Country: US (occurrence: US)
  Receive Date: 20241003
  Receipt Date: 20241003
  Transmission Date: 20250115
  Serious: Yes (Other)
  Sender: Unknown Manufacturer
  Company Number: US-KOANAAP-SML-US-2024-00989

PATIENT
  Age: 59 Year
  Sex: Male

DRUGS (4)
  1. APREMILAST [Suspect]
     Active Substance: APREMILAST
     Indication: Dermatomyositis
  2. USTEKINUMAB [Suspect]
     Active Substance: USTEKINUMAB
     Indication: Dermatomyositis
  3. TRIAMCINOLONE [Suspect]
     Active Substance: TRIAMCINOLONE
     Indication: Dermatomyositis
  4. PREDNISONE [Suspect]
     Active Substance: PREDNISONE
     Indication: Dermatomyositis

REACTIONS (1)
  - Drug ineffective [Unknown]
